FAERS Safety Report 8822284 (Version 1)
Quarter: 2012Q4

REPORT INFORMATION
  Report Type: 
  Country: US (occurrence: US)
  Receive Date: 20121003
  Receipt Date: 20121003
  Transmission Date: 20130627
  Serious: Yes (Other)
  Sender: FDA-Public Use
  Company Number: PHEH2012US018923

PATIENT
  Sex: Female

DRUGS (5)
  1. DIOVAN HCT [Suspect]
     Dosage: 01 DF (160/12.5)
     Route: 048
  2. SIMVASTATIN [Concomitant]
  3. TRAVOTOL [Concomitant]
  4. ACEBUTOLOL [Concomitant]
  5. OMEPRAZOLE [Concomitant]

REACTIONS (4)
  - Glaucoma [Unknown]
  - Cataract [Unknown]
  - Arthropathy [Unknown]
  - Product quality issue [Unknown]
